FAERS Safety Report 14581260 (Version 2)
Quarter: 2018Q1

REPORT INFORMATION
  Report Type: Report from Study
  Country: GB (occurrence: GB)
  Receive Date: 20180228
  Receipt Date: 20180326
  Transmission Date: 20180509
  Serious: Yes (Hospitalization)
  Sender: FDA-Public Use
  Company Number: GB-ROCHE-1667529

PATIENT
  Sex: Female

DRUGS (3)
  1. TOCILIZUMAB. [Suspect]
     Active Substance: TOCILIZUMAB
     Route: 065
     Dates: start: 20150610
  2. TOCILIZUMAB. [Suspect]
     Active Substance: TOCILIZUMAB
     Indication: RHEUMATOID ARTHRITIS
     Route: 065
     Dates: start: 20140731, end: 20150519
  3. TOCILIZUMAB. [Suspect]
     Active Substance: TOCILIZUMAB
     Indication: RHEUMATOID ARTHRITIS
     Route: 058
     Dates: end: 20160315

REACTIONS (15)
  - Osteonecrosis [Unknown]
  - Stress [Unknown]
  - Catheter site infection [Unknown]
  - Decubitus ulcer [Unknown]
  - Pneumonia [Unknown]
  - Gastroenteritis viral [Unknown]
  - Osteomyelitis [Unknown]
  - Cellulitis [Unknown]
  - Type 2 diabetes mellitus [Unknown]
  - Pneumonia aspiration [Unknown]
  - Catheter site infection [Unknown]
  - Fungal test positive [Unknown]
  - Muscle twitching [Unknown]
  - Anxiety [Unknown]
  - Pneumonia [Unknown]

NARRATIVE: CASE EVENT DATE: 20160212
